FAERS Safety Report 10192972 (Version 1)
Quarter: 2014Q2

REPORT INFORMATION
  Report Type: Report from Study
  Country: CA (occurrence: CA)
  Receive Date: 20140523
  Receipt Date: 20140523
  Transmission Date: 20141212
  Serious: Yes (Other)
  Sender: FDA-Public Use
  Company Number: CA-ABBVIE-14P-028-1239208-00

PATIENT
  Sex: Male
  Weight: 54.48 kg

DRUGS (2)
  1. HUMIRA [Suspect]
     Indication: CROHN^S DISEASE
     Route: 058
     Dates: start: 20110610
  2. HUMIRA [Suspect]

REACTIONS (2)
  - Tooth disorder [Recovering/Resolving]
  - Abdominal pain [Not Recovered/Not Resolved]
